FAERS Safety Report 5024728-8 (Version None)
Quarter: 2006Q2

REPORT INFORMATION
  Report Type: 
  Country: None (occurrence: None)
  Receive Date: 20060613
  Receipt Date: 20050721
  Transmission Date: 20061013
  Serious: Yes (Death, Hospitalization, Other)
  Sender: FDA-Public Use
  Company Number: PHHO2005MY11494

PATIENT
  Age: 57 Year
  Sex: Male

DRUGS (1)
  1. GLEEVEC [Suspect]
     Indication: CHRONIC MYELOID LEUKAEMIA
     Dates: start: 20040512

REACTIONS (3)
  - ANAEMIA [None]
  - MALIGNANT NEOPLASM PROGRESSION [None]
  - SEPSIS [None]
